FAERS Safety Report 10369474 (Version 1)
Quarter: 2014Q1

REPORT INFORMATION
  Report Type: Spontaneous
  Country: US (occurrence: None)
  Receive Date: 20140306
  Receipt Date: 20140306
  Transmission Date: 20141002
  Serious: Yes (Hospitalization)
  Sender: FDA-Public Use
  Company Number: 163-21880-13091012

PATIENT
  Age: 65 Year
  Sex: Female

DRUGS (8)
  1. REVLIMID [Suspect]
     Indication: PLASMA CELL MYELOMA
     Dosage: 10 MG, 28 IN 28 D, PO
     Dates: start: 20130611
  2. OMEPRAZOLE [Concomitant]
  3. ACYCLOVIR (ACICLOVIR) [Concomitant]
  4. METOPROLOL (METOPROLOL) [Concomitant]
  5. CRESTOR (ROSUVASTATIN) [Concomitant]
  6. VIT D3 (COLECALCIFEROL) [Concomitant]
  7. ASPIRIN (ACETYLSALICYLIC ACID) [Concomitant]
  8. MIRTAZAPINE (MIRTAZAPINE) [Concomitant]

REACTIONS (2)
  - Blood potassium decreased [None]
  - White blood cell count decreased [None]
